FAERS Safety Report 20791704 (Version 6)
Quarter: 2022Q3

REPORT INFORMATION
  Report Type: Report from Study
  Country: US (occurrence: US)
  Receive Date: 20220505
  Receipt Date: 20220918
  Transmission Date: 20221027
  Serious: Yes (Other)
  Sender: FDA-Public Use
  Company Number: US-NOVARTISTESTPH-NVSC2022US103417

PATIENT
  Age: 66 Year
  Sex: Male

DRUGS (1)
  1. LEQVIO [Suspect]
     Active Substance: INCLISIRAN SODIUM
     Indication: Product used for unknown indication
     Dosage: UNK
     Route: 058
     Dates: start: 20220429

REACTIONS (24)
  - Brain injury [Unknown]
  - Cardiac failure [Unknown]
  - Arrhythmia [Unknown]
  - Increased appetite [Recovered/Resolved with Sequelae]
  - Injection site pain [Unknown]
  - Drug interaction [Unknown]
  - Feeling abnormal [Unknown]
  - Pharyngeal swelling [Unknown]
  - Fatigue [Unknown]
  - Dyspnoea [Unknown]
  - Blood cholesterol decreased [Unknown]
  - Blood triglycerides increased [Unknown]
  - Pain [Unknown]
  - Nausea [Unknown]
  - COVID-19 [Unknown]
  - Dysphonia [Unknown]
  - Dizziness [Unknown]
  - Sleep disorder [Unknown]
  - Sneezing [Unknown]
  - Cough [Unknown]
  - Throat irritation [Unknown]
  - Asthenia [Unknown]
  - Product dose omission issue [Unknown]
  - Inappropriate schedule of product administration [Unknown]

NARRATIVE: CASE EVENT DATE: 20220429
